FAERS Safety Report 20634578 (Version 1)
Quarter: 2022Q1

REPORT INFORMATION
  Report Type: Spontaneous
  Country: FR (occurrence: FR)
  Receive Date: 20220325
  Receipt Date: 20220325
  Transmission Date: 20220423
  Serious: Yes (Hospitalization, Other)
  Sender: FDA-Public Use
  Company Number: FR-CELLTRION INC.-2022FR003195

PATIENT

DRUGS (5)
  1. RITUXIMAB [Suspect]
     Active Substance: RITUXIMAB
     Indication: Mantle cell lymphoma
  2. LENALIDOMIDE [Suspect]
     Active Substance: LENALIDOMIDE
     Indication: Mantle cell lymphoma
     Dosage: 15 MG, DAILY (21 OUT OF EVERY 28 DAYS)
     Route: 048
  3. LENALIDOMIDE [Suspect]
     Active Substance: LENALIDOMIDE
     Dosage: 15 MG, DAILY (21 OUT OF EVERY 28 DAYS)
     Route: 048
  4. LENALIDOMIDE [Suspect]
     Active Substance: LENALIDOMIDE
     Dosage: 15 MG, DAILY (THEORETICAL PERIOD OF 3 WEEKS)
     Route: 048
  5. LENALIDOMIDE [Suspect]
     Active Substance: LENALIDOMIDE
     Dosage: 15 MG, DAILY (THEORETICAL PERIOD OF 3 WEEKS)
     Route: 048

REACTIONS (4)
  - Normocytic anaemia [Recovered/Resolved]
  - Multisystem inflammatory syndrome [Recovered/Resolved]
  - Arthritis [Unknown]
  - Off label use [Unknown]
